FAERS Safety Report 20335321 (Version 1)
Quarter: 2022Q1

REPORT INFORMATION
  Report Type: Report from Study
  Country: US (occurrence: US)
  Receive Date: 20220114
  Receipt Date: 20220114
  Transmission Date: 20220423
  Serious: Yes (Death)
  Sender: FDA-Public Use
  Company Number: US-MYLANLABS-2022M1002253

PATIENT
  Sex: Female

DRUGS (1)
  1. PERFOROMIST [Suspect]
     Active Substance: FORMOTEROL FUMARATE DIHYDRATE
     Indication: Product used for unknown indication
     Dosage: 20/2 MICROGRAM PER MILLILITRE
     Route: 055

REACTIONS (1)
  - Death [Fatal]
